FAERS Safety Report 23406195 (Version 1)
Quarter: 2024Q1

REPORT INFORMATION
  Report Type: Spontaneous
  Country: US (occurrence: US)
  Receive Date: 20240116
  Receipt Date: 20240116
  Transmission Date: 20240410
  Serious: Yes (Other)
  Sender: FDA-Public Use
  Company Number: US-PFIZER INC-202400011795

PATIENT
  Age: 40 Year
  Sex: Female

DRUGS (1)
  1. ABROCITINIB [Suspect]
     Active Substance: ABROCITINIB
     Indication: Dermatitis atopic
     Dosage: 100 MG DAILY
     Dates: start: 20231001

REACTIONS (4)
  - Pneumonia [Recovering/Resolving]
  - Weight increased [Recovering/Resolving]
  - Abdominal distension [Recovering/Resolving]
  - Upper respiratory tract infection [Recovering/Resolving]
